FAERS Safety Report 7023027-2 (Version None)
Quarter: 2010Q3

REPORT INFORMATION
  Report Type: 
  Country: None (occurrence: None)
  Receive Date: 20100930
  Receipt Date: 20100726
  Transmission Date: 20110219
  Serious: Yes (Hospitalization)
  Sender: FDA-Public Use
  Company Number: US-BAYER-201024821NA

PATIENT
  Age: 28 Year
  Sex: Female
  Weight: 90 kg

DRUGS (19)
  1. YASMIN [Suspect]
     Indication: CONTRACEPTION
     Dosage: USE: 2007 60 OCT-2009. DISCREPANCY IN MEDICAL RECORDS: YASMIN SEP-2009. PRESCRIPTION: 20-OCT-2009
     Route: 048
  2. OCELLA [Suspect]
     Indication: PRODUCT USED FOR UNKNOWN INDICATION
     Dosage: USE 2000-2010. DISCREPANCY IN MEDICAL RECORDS: JUL-08 TO -AUG-09 (OR 2000-2010).
     Route: 048
  3. YAZ [Suspect]
     Indication: CONTRACEPTION
     Dosage: USED IN 2007. DISCREPANCY IN MEDICAL RECORDS: OCT-2009.
     Route: 048
  4. FLUCONAZOLE [Concomitant]
     Route: 065
  5. SULFATE/TRIMETHOPRIM [Concomitant]
     Route: 065
  6. FAMCICLOVIR [Concomitant]
     Route: 065
  7. BETAMETHASONE [Concomitant]
     Route: 065
  8. VALTREX [Concomitant]
     Route: 048
  9. ZOVIRAX [Concomitant]
     Route: 065
  10. DOXYCYCLINE HYCLATE [Concomitant]
     Route: 065
  11. PREDNISONE [Concomitant]
     Route: 065
  12. OXYCODONE [Concomitant]
     Route: 065
  13. CEFDINIR [Concomitant]
     Route: 065
  14. TERCONAZOLE [Concomitant]
     Route: 048
  15. TRIAMCINOLONE [Concomitant]
     Route: 065
  16. METRONIDAZOLE [Concomitant]
     Route: 065
  17. AMOXICILLIN [Concomitant]
     Route: 065
  18. FERROUS SULFATE [Concomitant]
     Route: 065
  19. IBUPROFEN [Concomitant]
     Route: 048

REACTIONS (10)
  - BLOOD IRON DECREASED [None]
  - CHEST PAIN [None]
  - DYSPNOEA [None]
  - INJURY [None]
  - MUSCULOSKELETAL PAIN [None]
  - NECK PAIN [None]
  - NORMOCHROMIC NORMOCYTIC ANAEMIA [None]
  - PRODUCTIVE COUGH [None]
  - PULMONARY EMBOLISM [None]
  - PULMONARY INFARCTION [None]
